FAERS Safety Report 17795386 (Version 1)
Quarter: 2020Q2

REPORT INFORMATION
  Report Type: Spontaneous
  Country: SK (occurrence: SK)
  Receive Date: 20200515
  Receipt Date: 20200515
  Transmission Date: 20200714
  Serious: Yes (Hospitalization)
  Sender: FDA-Public Use
  Company Number: NVSC2020SK090158

PATIENT
  Age: 72 Year
  Sex: Female

DRUGS (2)
  1. ETANERCEPT [Suspect]
     Active Substance: ETANERCEPT
     Indication: RHEUMATOID ARTHRITIS
     Dosage: UNK
     Route: 065
  2. ETANERCEPT [Suspect]
     Active Substance: ETANERCEPT
     Route: 058

REACTIONS (12)
  - Chronic kidney disease [Unknown]
  - Muscle abscess [Unknown]
  - Intervertebral discitis [Unknown]
  - Bacterial sepsis [Unknown]
  - Pyrexia [Unknown]
  - Condition aggravated [Unknown]
  - Erysipelas [Unknown]
  - Febrile infection [Unknown]
  - Pain in extremity [Unknown]
  - Angina pectoris [Unknown]
  - Back pain [Unknown]
  - Hypertensive urgency [Unknown]
